FAERS Safety Report 6230867-6 (Version None)
Quarter: 2009Q2

REPORT INFORMATION
  Report Type: 
  Country: None (occurrence: None)
  Receive Date: 20090611
  Receipt Date: 20090527
  Transmission Date: 20091009
  Serious: Yes (Other)
  Sender: FDA-Public Use
  Company Number: 0476

PATIENT
  Age: 60 Year
  Sex: Male

DRUGS (1)
  1. INDOMETHACIN [Suspect]
     Dosage: 100 MG PO
     Route: 048
     Dates: start: 20090517, end: 20090517

REACTIONS (4)
  - AGITATION [None]
  - HYPERHIDROSIS [None]
  - MALAISE [None]
  - NAUSEA [None]
